FAERS Safety Report 25017958 (Version 1)
Quarter: 2025Q1

REPORT INFORMATION
  Report Type: Report from Study
  Country: ES (occurrence: ES)
  Receive Date: 20250227
  Receipt Date: 20250227
  Transmission Date: 20250409
  Serious: Yes (Hospitalization, Other)
  Sender: TAKEDA
  Company Number: ES-PFIZER INC-202500037468

PATIENT
  Age: 6 Decade
  Sex: Male

DRUGS (4)
  1. BORTEZOMIB [Suspect]
     Active Substance: BORTEZOMIB
     Indication: Lymphadenopathy
  2. RITUXIMAB [Suspect]
     Active Substance: RITUXIMAB
     Indication: Lymphadenopathy
  3. THALIDOMIDE [Suspect]
     Active Substance: THALIDOMIDE
     Indication: Lymphadenopathy
     Dosage: 50 MILLIGRAM, QD
  4. PREDNISONE [Concomitant]
     Active Substance: PREDNISONE
     Indication: Lymphadenopathy
     Dosage: 30 MILLIGRAM, QD

REACTIONS (1)
  - Pancytopenia [Unknown]
